FAERS Safety Report 13795820 (Version 1)
Quarter: 2017Q3

REPORT INFORMATION
  Report Type: Spontaneous
  Country: FR (occurrence: FR)
  Receive Date: 20170726
  Receipt Date: 20170726
  Transmission Date: 20171127
  Serious: Yes (Congenital Anomaly)
  Sender: FDA-Public Use
  Company Number: FR-ASTRAZENECA-2017SE74811

PATIENT
  Sex: Male

DRUGS (4)
  1. MOPRAL [Suspect]
     Active Substance: OMEPRAZOLE SODIUM
     Route: 064
     Dates: end: 20160625
  2. PERINDOPRIL [Suspect]
     Active Substance: PERINDOPRIL
     Indication: HYPERTENSION
     Route: 064
  3. ALDOMET [Suspect]
     Active Substance: METHYLDOPA
     Route: 064
     Dates: end: 20160625
  4. PROZAC [Suspect]
     Active Substance: FLUOXETINE HYDROCHLORIDE
     Route: 064
     Dates: end: 20160625

REACTIONS (2)
  - Cleft lip [Unknown]
  - Cleft palate [Unknown]
